FAERS Safety Report 25434912 (Version 4)
Quarter: 2025Q3

REPORT INFORMATION
  Report Type: Spontaneous
  Country: US (occurrence: US)
  Receive Date: 20250613
  Receipt Date: 20250908
  Transmission Date: 20251020
  Serious: No
  Sender: BRISTOL-MYERS SQUIBB COMPANY
  Company Number: US-BRISTOL-MYERS SQUIBB COMPANY-2025-084055

PATIENT
  Age: 84 Year
  Sex: Female
  Weight: 58.97 kg

DRUGS (15)
  1. REVLIMID [Suspect]
     Active Substance: LENALIDOMIDE
     Indication: Plasma cell myeloma
  2. REVLIMID [Suspect]
     Active Substance: LENALIDOMIDE
     Dates: start: 202504
  3. REVLIMID [Suspect]
     Active Substance: LENALIDOMIDE
  4. DARZALEX [Concomitant]
     Active Substance: DARATUMUMAB
     Indication: Product used for unknown indication
  5. DEXAMETHASONE [Concomitant]
     Active Substance: DEXAMETHASONE
     Indication: Product used for unknown indication
  6. ESTRADIOL [Concomitant]
     Active Substance: ESTRADIOL
     Indication: Product used for unknown indication
  7. FAMOTIDINE [Concomitant]
     Active Substance: FAMOTIDINE
     Indication: Product used for unknown indication
  8. IRON [Concomitant]
     Active Substance: IRON
     Indication: Product used for unknown indication
  9. ONDANSETRON [Concomitant]
     Active Substance: ONDANSETRON
     Indication: Product used for unknown indication
  10. PROCHLORPERAZINE [Concomitant]
     Active Substance: PROCHLORPERAZINE
     Indication: Product used for unknown indication
  11. SIMVASTATIN [Concomitant]
     Active Substance: SIMVASTATIN
     Indication: Product used for unknown indication
  12. ACYCLOVIR [Concomitant]
     Active Substance: ACYCLOVIR
     Indication: Product used for unknown indication
  13. ALIGN [Concomitant]
     Active Substance: BIFIDOBACTERIUM LONGUM SUBSP. INFANTIS
     Indication: Product used for unknown indication
  14. AMLODIPINE BESYLATE\BENAZEPRIL HYDROCHLORIDE [Concomitant]
     Active Substance: AMLODIPINE BESYLATE\BENAZEPRIL HYDROCHLORIDE
     Indication: Product used for unknown indication
  15. ASPIRIN [Concomitant]
     Active Substance: ASPIRIN
     Indication: Product used for unknown indication

REACTIONS (8)
  - Skin exfoliation [Recovered/Resolved]
  - Fatigue [Recovering/Resolving]
  - Arthritis [Recovering/Resolving]
  - Oedema peripheral [Recovering/Resolving]
  - Full blood count decreased [Recovering/Resolving]
  - Cellulitis [Recovering/Resolving]
  - Oedema [Recovering/Resolving]
  - Arthralgia [Not Recovered/Not Resolved]
